FAERS Safety Report 7278918-4 (Version None)
Quarter: 2011Q1

REPORT INFORMATION
  Report Type: 
  Country: None (occurrence: None)
  Receive Date: 20110207
  Receipt Date: 20110127
  Transmission Date: 20110831
  Serious: Yes (Other)
  Sender: FDA-Public Use
  Company Number: GB-JNJFOC-20101104173

PATIENT
  Sex: Female
  Weight: 80.3 kg

DRUGS (5)
  1. YASMIN [Concomitant]
     Indication: CONTRACEPTION
     Route: 048
  2. XENICAL [Concomitant]
     Indication: OVERWEIGHT
  3. STELARA [Suspect]
     Indication: PSORIASIS
     Route: 058
  4. STELARA [Suspect]
     Route: 058
  5. STELARA [Suspect]
     Route: 058

REACTIONS (1)
  - ALANINE AMINOTRANSFERASE INCREASED [None]
